FAERS Safety Report 21972316 (Version 1)
Quarter: 2023Q1

REPORT INFORMATION
  Report Type: Spontaneous
  Country: US (occurrence: None)
  Receive Date: 20230207
  Receipt Date: 20230207
  Transmission Date: 20230418
  Serious: No
  Sender: FDA-Public Use
  Company Number: None

PATIENT
  Age: 32 Year
  Sex: Male
  Weight: 110.7 kg

DRUGS (2)
  1. VENLAFAXINE HYDROCHLORIDE [Suspect]
     Active Substance: VENLAFAXINE HYDROCHLORIDE
     Indication: Major depression
     Dosage: OTHER QUANTITY : 1 CAPSULE(S);?FREQUENCY : AT BEDTIME;?
     Route: 048
     Dates: start: 20230101
  2. VENLAFAXINE HYDROCHLORIDE [Suspect]
     Active Substance: VENLAFAXINE HYDROCHLORIDE
     Indication: Generalised anxiety disorder

REACTIONS (3)
  - Insomnia [None]
  - Libido decreased [None]
  - Nervousness [None]

NARRATIVE: CASE EVENT DATE: 20230116
